FAERS Safety Report 23085429 (Version 1)
Quarter: 2023Q4

REPORT INFORMATION
  Report Type: Spontaneous
  Country: CZ (occurrence: CZ)
  Receive Date: 20231019
  Receipt Date: 20231019
  Transmission Date: 20240109
  Serious: Yes (Other)
  Sender: FDA-Public Use
  Company Number: None

PATIENT
  Age: 31 Year
  Sex: Female
  Weight: 68 kg

DRUGS (2)
  1. MEDROL [Suspect]
     Active Substance: METHYLPREDNISOLONE
     Indication: Colitis ulcerative
     Dosage: 2 TABLETS IN THE MORNING, 1 TABLET IN THE EVENING
     Route: 048
     Dates: start: 20230902
  2. PENTASA [Concomitant]
     Active Substance: MESALAMINE
     Dosage: UNK

REACTIONS (6)
  - Insomnia [Recovered/Resolved]
  - Localised oedema [Recovered/Resolved]
  - Tremor [Recovered/Resolved]
  - Amenorrhoea [Recovered/Resolved]
  - Swelling face [Recovered/Resolved]
  - Increased appetite [Recovered/Resolved]

NARRATIVE: CASE EVENT DATE: 20230910
